FAERS Safety Report 20022363 (Version 1)
Quarter: 2021Q4

REPORT INFORMATION
  Report Type: Spontaneous
  Country: US (occurrence: US)
  Receive Date: 20211102
  Receipt Date: 20211102
  Transmission Date: 20220304
  Serious: No
  Sender: FDA-Public Use
  Company Number: US-BAUSCH-BL-2021-035955

PATIENT
  Sex: Male

DRUGS (3)
  1. PROLENSA [Suspect]
     Active Substance: BROMFENAC SODIUM
     Indication: Retinal disorder
     Dosage: 1 DROP IN EACH EYE PER DAY
     Route: 047
     Dates: start: 20211008, end: 20211023
  2. PROLENSA [Suspect]
     Active Substance: BROMFENAC SODIUM
     Indication: Off label use
  3. KETOROLAC [Concomitant]
     Active Substance: KETOROLAC TROMETHAMINE
     Indication: Product used for unknown indication

REACTIONS (3)
  - Instillation site pain [Unknown]
  - Therapy interrupted [Unknown]
  - Off label use [Unknown]

NARRATIVE: CASE EVENT DATE: 20211001
